FAERS Safety Report 11343691 (Version 1)
Quarter: 2015Q3

REPORT INFORMATION
  Report Type: Spontaneous
  Country: US (occurrence: None)
  Receive Date: 20150804
  Receipt Date: 20150804
  Transmission Date: 20151125
  Serious: Yes (Other)
  Sender: FDA-Public Use
  Company Number: None

PATIENT
  Age: 61 Year
  Sex: Male

DRUGS (2)
  1. SOVALDI [Suspect]
     Active Substance: SOFOSBUVIR
     Indication: HEPATITIS C
     Dosage: THERAPY DATES ?1-13-15 TO Y-2415
     Route: 048
     Dates: start: 20150113
  2. RIBASPHERE [Suspect]
     Active Substance: RIBAVIRIN
     Indication: HEPATITIS C
     Dosage: THERAPY DATES ?1-13-15 TO Y-2415
     Route: 048
     Dates: start: 20150113

REACTIONS (3)
  - Anaemia [None]
  - Neutropenia [None]
  - Leukaemia [None]

NARRATIVE: CASE EVENT DATE: 20150720
